FAERS Safety Report 5206709-4 (Version None)
Quarter: 2007Q1

REPORT INFORMATION
  Report Type: 
  Country: None (occurrence: None)
  Receive Date: 20070109
  Receipt Date: 20070104
  Transmission Date: 20070707
  Serious: Yes (Hospitalization, Other)
  Sender: FDA-Public Use
  Company Number: 150761

PATIENT
  Sex: Female

DRUGS (3)
  1. DICLOFENAC SODIUM [Suspect]
  2. ASPIRIN [Suspect]
  3. PLAVIX [Suspect]

REACTIONS (1)
  - PERICARDIAL HAEMORRHAGE [None]
